FAERS Safety Report 6240292-X (Version None)
Quarter: 2009Q2

REPORT INFORMATION
  Report Type: 
  Country: None (occurrence: None)
  Receive Date: 20090623
  Receipt Date: 20080619
  Transmission Date: 20091009
  Serious: No
  Sender: FDA-Public Use
  Company Number: US-ASTRAZENECA-2008UW12376

PATIENT
  Sex: Female

DRUGS (5)
  1. PULMICORT FLEXHALER [Suspect]
     Indication: ASTHMA
     Route: 055
     Dates: start: 20080501
  2. CARTIA XT [Concomitant]
  3. COZAAR [Concomitant]
  4. XOPENEX [Concomitant]
     Dosage: PRN
  5. SPIRIVA [Concomitant]

REACTIONS (1)
  - ALOPECIA [None]
